FAERS Safety Report 14011805 (Version 1)
Quarter: 2017Q3

REPORT INFORMATION
  Report Type: Spontaneous
  Country: MX (occurrence: None)
  Receive Date: 20170918
  Receipt Date: 20170918
  Transmission Date: 20171128
  Serious: Yes (Congenital Anomaly)
  Sender: FDA-Public Use
  Company Number: None

PATIENT
  Age: 17 Year
  Sex: Female
  Weight: 40 kg

DRUGS (1)
  1. ETANERCEPT, 25 MG [Suspect]
     Active Substance: ETANERCEPT
     Route: 058

REACTIONS (1)
  - Benign hydatidiform mole [None]

NARRATIVE: CASE EVENT DATE: 20170913
